FAERS Safety Report 10503092 (Version 1)
Quarter: 2014Q4

REPORT INFORMATION
  Report Type: Spontaneous
  Country: DE (occurrence: DE)
  Receive Date: 20141007
  Receipt Date: 20141007
  Transmission Date: 20150528
  Serious: Yes (Death)
  Sender: FDA-Public Use
  Company Number: DE-MYLANLABS-2014M1006430

PATIENT

DRUGS (3)
  1. PIRENZEPINE [Concomitant]
     Active Substance: PIRENZEPINE
     Route: 065
  2. HALOPERIDOL. [Concomitant]
     Active Substance: HALOPERIDOL
     Route: 065
  3. CLOZAPINE. [Suspect]
     Active Substance: CLOZAPINE
     Dosage: DOSE ADJUSTED UP TO 500 MG/DAY
     Route: 065

REACTIONS (3)
  - Constipation [Fatal]
  - Acquired diaphragmatic eventration [Fatal]
  - Lung disorder [Fatal]
